FAERS Safety Report 16675317 (Version 1)
Quarter: 2019Q3

REPORT INFORMATION
  Report Type: Spontaneous
  Country: ES (occurrence: ES)
  Receive Date: 20190806
  Receipt Date: 20190806
  Transmission Date: 20191004
  Serious: Yes (Other)
  Sender: FDA-Public Use
  Company Number: ES-009507513-1908ESP001608

PATIENT
  Age: 59 Year
  Sex: Male

DRUGS (10)
  1. SINEMET PLUS 25/100 MG COMPRIMIDOS [Suspect]
     Active Substance: CARBIDOPA\LEVODOPA
     Indication: PARKINSON^S DISEASE
     Dosage: 1-1-1
     Route: 048
     Dates: start: 20180307
  2. PRAVASTATIN. [Concomitant]
     Active Substance: PRAVASTATIN
     Dosage: UNK
  3. VENTOLIN [Concomitant]
     Active Substance: ALBUTEROL SULFATE
     Dosage: UNK
  4. PAROXETINE. [Interacting]
     Active Substance: PAROXETINE
     Indication: MIXED ANXIETY AND DEPRESSIVE DISORDER
     Dosage: 2-0-0
     Route: 048
     Dates: start: 20180710
  5. SECALIP [Concomitant]
     Active Substance: FENOFIBRATE
     Dosage: UNK
  6. XADAGO [Interacting]
     Active Substance: SAFINAMIDE MESYLATE
     Indication: PARKINSON^S DISEASE
     Dosage: 1-0-0
     Route: 048
     Dates: start: 20190624, end: 20190712
  7. RIVOTRIL [Concomitant]
     Active Substance: CLONAZEPAM
     Dosage: UNK
  8. PANTOPRAZOLE [Concomitant]
     Active Substance: PANTOPRAZOLE
     Dosage: UNK
  9. OPTOVITE B12 [Concomitant]
     Active Substance: CYANOCOBALAMIN
     Dosage: UNK
  10. TROMALYT [Concomitant]
     Active Substance: ASPIRIN
     Dosage: UNK

REACTIONS (1)
  - Impulsive behaviour [Recovering/Resolving]

NARRATIVE: CASE EVENT DATE: 2019
